FAERS Safety Report 5099821-4 (Version None)
Quarter: 2006Q3

REPORT INFORMATION
  Report Type: 
  Country: None (occurrence: None)
  Receive Date: 20060908
  Receipt Date: 20060809
  Transmission Date: 20061208
  Serious: Yes (Other)
  Sender: FDA-Public Use
  Company Number: CA-MERCK-0608CAN00054

PATIENT
  Age: 5 Year
  Sex: Female
  Weight: 17 kg

DRUGS (2)
  1. SINGULAIR [Suspect]
     Indication: ASTHMA
     Route: 048
     Dates: start: 20060711
  2. FLUTICASONE PROPIONATE [Concomitant]
     Route: 055
     Dates: start: 20060706

REACTIONS (2)
  - BRONCHITIS [None]
  - NIGHTMARE [None]
